FAERS Safety Report 6982312-0 (Version None)
Quarter: 2010Q3

REPORT INFORMATION
  Report Type: 
  Country: None (occurrence: None)
  Receive Date: 20100914
  Receipt Date: 20091217
  Transmission Date: 20110219
  Serious: No
  Sender: FDA-Public Use
  Company Number: US-PFIZER INC-2009312071

PATIENT
  Sex: Female

DRUGS (2)
  1. LYRICA [Suspect]
     Indication: SPINAL COLUMN STENOSIS
     Dosage: 50 MG, 3X/DAY
     Route: 048
     Dates: start: 20091201, end: 20091212
  2. LYRICA [Suspect]
     Indication: NEURALGIA

REACTIONS (3)
  - CONFUSIONAL STATE [None]
  - OEDEMA PERIPHERAL [None]
  - SPEECH DISORDER [None]
